FAERS Safety Report 6302890-4 (Version None)
Quarter: 2009Q3

REPORT INFORMATION
  Report Type: 
  Country: None (occurrence: None)
  Receive Date: 20090810
  Receipt Date: 20090731
  Transmission Date: 20100115
  Serious: Yes (Other)
  Sender: FDA-Public Use
  Company Number: US-AVENTIS-200916655US

PATIENT
  Sex: Female

DRUGS (2)
  1. LANTUS [Suspect]
     Indication: TYPE 2 DIABETES MELLITUS
     Dosage: DOSE: 16-18 UNITS
     Route: 058
     Dates: start: 20060101, end: 20090701
  2. METFORMIN HCL [Concomitant]
     Dosage: DOSE: UNK

REACTIONS (1)
  - BREAST CANCER [None]
